FAERS Safety Report 6295368-8 (Version None)
Quarter: 2009Q3

REPORT INFORMATION
  Report Type: 
  Country: None (occurrence: None)
  Receive Date: 20090803
  Receipt Date: 20090727
  Transmission Date: 20100115
  Serious: Yes (Hospitalization)
  Sender: FDA-Public Use
  Company Number: DE-SANOFI-SYNTHELABO-F04200900065

PATIENT
  Sex: Female

DRUGS (6)
  1. BEVACIZUMAB [Suspect]
     Indication: COLORECTAL CANCER METASTATIC
     Route: 041
  2. BEVACIZUMAB [Suspect]
     Indication: DISEASE PROGRESSION
     Route: 041
  3. FLUOROURACIL [Suspect]
     Indication: COLORECTAL CANCER METASTATIC
     Route: 040
  4. FLUOROURACIL [Suspect]
     Indication: DISEASE PROGRESSION
     Route: 040
  5. OXALIPLATIN [Suspect]
     Indication: COLORECTAL CANCER METASTATIC
     Route: 041
  6. OXALIPLATIN [Suspect]
     Indication: DISEASE PROGRESSION
     Route: 041

REACTIONS (1)
  - GASTRITIS [None]
